FAERS Safety Report 14505010 (Version 1)
Quarter: 2018Q1

REPORT INFORMATION
  Report Type: Spontaneous
  Country: IT (occurrence: IT)
  Receive Date: 20180208
  Receipt Date: 20180208
  Transmission Date: 20180509
  Serious: Yes (Other)
  Sender: FDA-Public Use
  Company Number: IT-WEST-WARD PHARMACEUTICALS CORP.-IT-H14001-18-00809

PATIENT
  Age: 73 Year
  Sex: Female

DRUGS (1)
  1. ROCURONIO HIKMA [Suspect]
     Active Substance: ROCURONIUM BROMIDE
     Indication: GENERAL ANAESTHESIA
     Dosage: IN TOTAL
     Route: 042
     Dates: start: 20180118, end: 20180118

REACTIONS (2)
  - Drug-device interaction [Recovered/Resolved]
  - Drug half-life reduced [Recovered/Resolved]

NARRATIVE: CASE EVENT DATE: 20180118
